FAERS Safety Report 9521311 (Version 1)
Quarter: 2013Q1

REPORT INFORMATION
  Report Type: Spontaneous
  Country: US (occurrence: None)
  Receive Date: 20130305
  Receipt Date: 20130305
  Transmission Date: 20140127
  Serious: Yes (Other)
  Sender: FDA-Public Use
  Company Number: 163-21880-12022812

PATIENT
  Age: 69 Year
  Sex: Female

DRUGS (5)
  1. REVLIMID [Suspect]
     Indication: PLASMA CELL MYELOMA
     Dosage: 10 MG, 21 IN 21 D, PO
     Route: 048
     Dates: start: 20091124, end: 20110621
  2. ASA (ACETYLSALICYLIC ACID) (UNKNOWN) [Concomitant]
  3. SYNTHROID (LEVOTHYROXINE SODIUM) (UNKNOWN) [Concomitant]
  4. TOPROL (METOPROLOL SUCCINATE) (UNKNOWN) [Concomitant]
  5. COZAAR (LOSARTAN POTASSIUM) (UNKNOWN) [Concomitant]

REACTIONS (3)
  - Rhinorrhoea [None]
  - Diarrhoea [None]
  - Viral infection [None]
